FAERS Safety Report 25479056 (Version 3)
Quarter: 2025Q3

REPORT INFORMATION
  Report Type: Spontaneous
  Country: RU (occurrence: RU)
  Receive Date: 20250625
  Receipt Date: 20250803
  Transmission Date: 20251020
  Serious: Yes (Other)
  Sender: ALEXION PHARMACEUTICALS
  Company Number: RU-AstraZeneca-CH-00896986A

PATIENT
  Age: 37 Year
  Sex: Female
  Weight: 80 kg

DRUGS (3)
  1. KOSELUGO [Suspect]
     Active Substance: SELUMETINIB
     Dosage: 50 MILLIGRAM, Q12H
     Dates: start: 20250425
  2. KOSELUGO [Suspect]
     Active Substance: SELUMETINIB
  3. KOSELUGO [Suspect]
     Active Substance: SELUMETINIB
     Dosage: 25 MILLIGRAM, BID
     Dates: end: 20250627

REACTIONS (5)
  - Oedema peripheral [Not Recovered/Not Resolved]
  - Erythema [Not Recovered/Not Resolved]
  - Paronychia [Unknown]
  - Erysipelas [Unknown]
  - Pyrexia [Unknown]

NARRATIVE: CASE EVENT DATE: 20250525
